FAERS Safety Report 4623767-6 (Version None)
Quarter: 2005Q1

REPORT INFORMATION
  Report Type: 
  Country: None (occurrence: None)
  Receive Date: 20050331
  Receipt Date: 20050315
  Transmission Date: 20050727
  Serious: Yes (Hospitalization)
  Sender: FDA-Public Use
  Company Number: GB-JNJFOC-20050306668

PATIENT
  Age: 34 Year

DRUGS (1)
  1. PANCREASE [Suspect]
     Indication: PANCREATIC ENZYME ABNORMALITY
     Route: 065

REACTIONS (1)
  - INFECTION [None]
